FAERS Safety Report 8347476-5 (Version None)
Quarter: 2012Q2

REPORT INFORMATION
  Report Type: 
  Country: None (occurrence: None)
  Receive Date: 20120509
  Receipt Date: 20120501
  Transmission Date: 20120825
  Serious: Yes (Other)
  Sender: FDA-Public Use
  Company Number: US-NOVOPROD-350763

PATIENT
  Age: 12 Year
  Sex: Female
  Weight: 28.571 kg

DRUGS (1)
  1. NORDITROPIN FLEXPRO [Suspect]
     Indication: PRODUCT USED FOR UNKNOWN INDICATION
     Dosage: 1.2 MG, UNKNOWN
     Route: 058
     Dates: start: 20090101, end: 20120401

REACTIONS (1)
  - UPPER LIMB FRACTURE [None]
